FAERS Safety Report 21658650 (Version 2)
Quarter: 2023Q1

REPORT INFORMATION
  Report Type: Spontaneous
  Country: US (occurrence: US)
  Receive Date: 20221129
  Receipt Date: 20230110
  Transmission Date: 20230417
  Serious: No
  Sender: FDA-Public Use
  Company Number: US-BAYER-2022A158903

PATIENT
  Age: 44 Year
  Sex: Female

DRUGS (1)
  1. CLIMARA [Suspect]
     Active Substance: ESTRADIOL
     Indication: Hormone replacement therapy
     Dosage: UNK
     Dates: start: 202209

REACTIONS (7)
  - Malabsorption from application site [None]
  - Drug ineffective [None]
  - Product packaging issue [None]
  - Nausea [None]
  - Dizziness [None]
  - Hot flush [None]
  - Malaise [None]

NARRATIVE: CASE EVENT DATE: 20220901
